FAERS Safety Report 21991995 (Version 1)
Quarter: 2023Q1

REPORT INFORMATION
  Report Type: Report from Study
  Country: EG (occurrence: EG)
  Receive Date: 20230214
  Receipt Date: 20230214
  Transmission Date: 20230418
  Serious: Yes (Other)
  Sender: FDA-Public Use
  Company Number: EG-002147023-NVSC2023EG029993

PATIENT
  Age: 50 Year
  Sex: Female

DRUGS (6)
  1. AIMOVIG [Suspect]
     Active Substance: ERENUMAB-AOOE
     Indication: Migraine
     Dosage: 70 MILLIGRAM, QMO
     Route: 058
     Dates: start: 20230117
  2. INDERAL [Concomitant]
     Active Substance: PROPRANOLOL HYDROCHLORIDE
     Indication: Migraine prophylaxis
     Dosage: 40 MILLIGRAM, Q8H
     Route: 065
     Dates: start: 202201
  3. TRYPTIZOL [Concomitant]
     Active Substance: AMITRIPTYLINE HYDROCHLORIDE
     Indication: Hypnotherapy
     Dosage: 25 MILLIGRAM (3 TABLETS BEFORE SLEEPING)
     Route: 065
     Dates: start: 202210
  4. TRYPTIZOL [Concomitant]
     Active Substance: AMITRIPTYLINE HYDROCHLORIDE
     Indication: Migraine prophylaxis
  5. QUITAPEX [Concomitant]
     Indication: Hypnotherapy
     Dosage: 200 MILLIGRAM, QD (ONCE BEFORE SLEEPING)
     Route: 065
     Dates: start: 202101
  6. VITAMINS [Concomitant]
     Active Substance: VITAMINS
     Indication: Anaemia
     Dosage: 1 DOSAGE FORM, QD
     Route: 065
     Dates: start: 20230117

REACTIONS (4)
  - Hypersensitivity [Not Recovered/Not Resolved]
  - Pruritus [Not Recovered/Not Resolved]
  - Scratch [Not Recovered/Not Resolved]
  - Drug ineffective [Unknown]

NARRATIVE: CASE EVENT DATE: 20230117
